FAERS Safety Report 10022952 (Version 1)
Quarter: 2014Q1

REPORT INFORMATION
  Report Type: Spontaneous
  Country: US (occurrence: US)
  Receive Date: 20140319
  Receipt Date: 20140319
  Transmission Date: 20141002
  Serious: No
  Sender: FDA-Public Use
  Company Number: US-SA-2014SA020731

PATIENT
  Age: 83 Year
  Sex: Female
  Weight: 79 kg

DRUGS (10)
  1. NASACORT ALLERGY [Suspect]
     Indication: NASAL CONGESTION
     Dosage: 1-2 SPRAYS/NOSTRIL.
     Route: 065
     Dates: start: 20140214, end: 20140215
  2. NASACORT ALLERGY [Suspect]
     Indication: SCAB
     Dosage: 1-2 SPRAYS/NOSTRIL.
     Route: 065
     Dates: start: 20140214, end: 20140215
  3. NASACORT ALLERGY [Suspect]
     Indication: NASAL CONGESTION
     Dosage: 1-2 SPRAYS/NOSTRIL.
     Route: 065
     Dates: start: 20140214, end: 20140215
  4. NASACORT ALLERGY [Suspect]
     Indication: SCAB
     Dosage: 1-2 SPRAYS/NOSTRIL.
     Route: 065
     Dates: start: 20140214, end: 20140215
  5. ELIQUIS [Concomitant]
  6. METOPROLOL TARTRATE [Concomitant]
  7. SIMVASTATIN [Concomitant]
  8. TRAZODONE [Concomitant]
  9. ALBUTEROL SULFATE [Concomitant]
     Dosage: 0.0835 2.5 MG2X
  10. ADVAIR DISKUS [Concomitant]
     Dosage: 250/50  2X

REACTIONS (1)
  - Heart rate increased [Recovered/Resolved]
